FAERS Safety Report 6342045-0 (Version None)
Quarter: 2009Q3

REPORT INFORMATION
  Report Type: 
  Country: None (occurrence: None)
  Receive Date: 20090903
  Receipt Date: 20090818
  Transmission Date: 20100115
  Serious: Yes (Disabling)
  Sender: FDA-Public Use
  Company Number: 002309

PATIENT
  Age: 83 Year
  Sex: Male

DRUGS (2)
  1. MACUGEN [Suspect]
     Indication: MACULAR DEGENERATION
     Dosage: 0.3MG, INTRAOCULAR
     Route: 031
     Dates: start: 20090302, end: 20090414
  2. FLOMOX (CEFCAPENE PIVOXIL HYDROCHLORIDE) [Concomitant]

REACTIONS (2)
  - DETACHMENT OF RETINAL PIGMENT EPITHELIUM [None]
  - RETINAL HAEMORRHAGE [None]
